FAERS Safety Report 9346568 (Version 1)
Quarter: 2013Q2

REPORT INFORMATION
  Report Type: Spontaneous
  Country: US (occurrence: US)
  Receive Date: 20130613
  Receipt Date: 20130613
  Transmission Date: 20140414
  Serious: Yes (Hospitalization)
  Sender: FDA-Public Use
  Company Number: US-BAYER-2013-072490

PATIENT
  Age: 41 Year
  Sex: Female

DRUGS (9)
  1. YAZ [Suspect]
  2. GIANVI [Suspect]
  3. YASMIN [Suspect]
  4. OCELLA [Suspect]
  5. HYDROCODONE/ACETAMINOPHEN [Concomitant]
     Dosage: 10/325 MG, UNK
     Route: 048
     Dates: start: 20121120
  6. LASIX [Concomitant]
     Dosage: 240 MG, BID
     Route: 048
     Dates: start: 20121130
  7. METOLAZONE [Concomitant]
     Dosage: 2.5 MG, DAILY
     Route: 048
     Dates: start: 20121130
  8. SPIRONOLACTONE [Concomitant]
     Dosage: 50 MG, UNK
     Route: 048
     Dates: start: 20121119
  9. BUTALBITAL, ACETAMINOPHEN + CAFFEINE [Concomitant]
     Dosage: 50/325/40 MG DAILY
     Route: 048
     Dates: start: 20121119

REACTIONS (3)
  - Pulmonary embolism [None]
  - Vena cava thrombosis [None]
  - Renal vein thrombosis [None]
